FAERS Safety Report 11296736 (Version 1)
Quarter: 2015Q3

REPORT INFORMATION
  Report Type: Spontaneous
  Country: US (occurrence: US)
  Receive Date: 20150722
  Receipt Date: 20150722
  Transmission Date: 20151125
  Serious: No
  Sender: FDA-Public Use
  Company Number: US-ELI_LILLY_AND_COMPANY-US201007005999

PATIENT
  Age: 62 Year
  Sex: Female
  Weight: 66.67 kg

DRUGS (3)
  1. EFFIENT [Suspect]
     Active Substance: PRASUGREL HYDROCHLORIDE
     Indication: PROPHYLAXIS
     Dosage: 10 MG, UNK
  2. BETA BLOCKING AGENTS [Concomitant]
     Active Substance: UNSPECIFIED INGREDIENT
  3. ASPIRIN. [Concomitant]
     Active Substance: ASPIRIN

REACTIONS (3)
  - Gastrointestinal disorder [Unknown]
  - Rash [Unknown]
  - Weight decreased [Unknown]
